FAERS Safety Report 5096393-5 (Version None)
Quarter: 2006Q3

REPORT INFORMATION
  Report Type: 
  Country: None (occurrence: None)
  Receive Date: 20060830
  Receipt Date: 20060818
  Transmission Date: 20061208
  Serious: Yes (Death)
  Sender: FDA-Public Use
  Company Number: RU200607003479

PATIENT
  Age: 29 Year
  Sex: Male
  Weight: 67 kg

DRUGS (7)
  1. ZYPREXA [Suspect]
     Indication: SCHIZOPHRENIA
     Dosage: SEE IMAGE, ORAL
     Route: 048
     Dates: start: 20060627, end: 20060702
  2. ZYPREXA [Suspect]
     Indication: SCHIZOPHRENIA
     Dosage: SEE IMAGE, ORAL
     Route: 048
     Dates: start: 20060703, end: 20060703
  3. ZYPREXA [Suspect]
     Indication: SCHIZOPHRENIA
     Dosage: SEE IMAGE, ORAL
     Route: 048
     Dates: start: 20060710, end: 20060710
  4. ZYPREXA [Suspect]
     Indication: SCHIZOPHRENIA
     Dosage: SEE IMAGE, ORAL
     Route: 048
     Dates: start: 20060703, end: 20060714
  5. CYMBALTA [Suspect]
     Dosage: 60 MG, DAILY (1/D)
     Dates: start: 20060703
  6. PHENAZEPAM (PHENAZEPAM) [Concomitant]
  7. TIANEPTINE (TIANEPTINE) [Concomitant]

REACTIONS (2)
  - COMPLETED SUICIDE [None]
  - PRESCRIBED OVERDOSE [None]
